FAERS Safety Report 11109528 (Version 2)
Quarter: 2015Q2

REPORT INFORMATION
  Report Type: Spontaneous
  Country: US (occurrence: None)
  Receive Date: 20150511
  Receipt Date: 20150526
  Transmission Date: 20150821
  Serious: Yes (Other)
  Sender: FDA-Public Use
  Company Number: ADR-2015-00869

PATIENT
  Age: 48 Year
  Sex: Female

DRUGS (6)
  1. CLONIDINE. [Suspect]
     Active Substance: CLONIDINE
     Dosage: 9.758 MCG/DAY
  2. FENTANYL INTRATHECAL 200 MCG/ML [Suspect]
     Active Substance: FENTANYL
     Indication: PAIN
     Dosage: 65.05 MCG/DAY
  3. DILAUDID [Suspect]
     Active Substance: HYDROMORPHONE HYDROCHLORIDE
     Dosage: 6.5050 MG/DAY?UNSPECIFIED ORAL ^PILLS^
  4. UNSPECIFIED ORAL PILLS [Suspect]
     Active Substance: UNSPECIFIED INGREDIENT
  5. BACLOFEN INTRATHECAL 50 MCG/ML [Suspect]
     Active Substance: BACLOFEN
     Indication: PAIN
     Dosage: 16.263 MCG/DAY
  6. BUPIVACAINE INTRATHECAL [Suspect]
     Active Substance: BUPIVACAINE
     Dosage: 1.6263 MG?

REACTIONS (13)
  - Burning sensation [None]
  - Device malfunction [None]
  - Pain [None]
  - Hypoaesthesia [None]
  - Device extrusion [None]
  - Device dislocation [None]
  - Implant site pain [None]
  - Medical device site discomfort [None]
  - Headache [None]
  - Loss of consciousness [None]
  - Implant site warmth [None]
  - Sensory loss [None]
  - Nerve compression [None]
